FAERS Safety Report 5202332-6 (Version None)
Quarter: 2006Q4

REPORT INFORMATION
  Report Type: 
  Country: None (occurrence: None)
  Receive Date: 20061012
  Receipt Date: 20051101
  Transmission Date: 20070319
  Serious: Yes (Hospitalization)
  Sender: FDA-Public Use
  Company Number: US-JNJFOC-20051002583

PATIENT
  Age: 79 Year
  Sex: Female
  Weight: 38.5557 kg

DRUGS (1)
  1. NATRECOR [Suspect]
     Indication: CARDIAC FAILURE CONGESTIVE
     Dosage: INTERMITTENT INFUSIONS
     Dates: start: 20050601

REACTIONS (1)
  - ATRIAL FLUTTER [None]
